FAERS Safety Report 24177767 (Version 1)
Quarter: 2024Q3

REPORT INFORMATION
  Report Type: Spontaneous
  Country: US (occurrence: US)
  Receive Date: 20240806
  Receipt Date: 20240806
  Transmission Date: 20241016
  Serious: Yes (Hospitalization, Other)
  Sender: NOVAST
  Company Number: US-NOVAST LABORATORIES INC.-2024NOV000286

PATIENT
  Age: 68 Year
  Sex: Male

DRUGS (1)
  1. DOCETAXEL [Suspect]
     Active Substance: DOCETAXEL\DOCETAXEL ANHYDROUS
     Indication: Prostate cancer metastatic
     Dosage: 75 MILLIGRAM/SQ. METER, EVERY 21 DAYS (6 DOCETAXEL INFUSIONS)
     Route: 065

REACTIONS (1)
  - Paraneoplastic dermatomyositis [Recovered/Resolved]
